FAERS Safety Report 10081337 (Version 1)
Quarter: 2014Q2

REPORT INFORMATION
  Report Type: Spontaneous
  Country: US (occurrence: None)
  Receive Date: 20140414
  Receipt Date: 20140414
  Transmission Date: 20141212
  Serious: Yes (Death)
  Sender: FDA-Public Use
  Company Number: SYM-2014-19607

PATIENT
  Age: 60 Year
  Sex: Male

DRUGS (3)
  1. XENAZINE (TETRABENAZINE) (25 MILLIGRAM, TABLET) (TETRABENAZINE) [Suspect]
     Indication: HUNTINGTON^S DISEASE
     Route: 048
  2. CELEXA (CITALOPRAM HYDROBROMIDE) [Concomitant]
  3. HALOPERIDOL (5 MILLIGRAM, TABLET) (HALOPERIDOL) [Concomitant]

REACTIONS (1)
  - Death [None]
